FAERS Safety Report 18972966 (Version 3)
Quarter: 2021Q2

REPORT INFORMATION
  Report Type: Report from Study
  Country: US (occurrence: US)
  Receive Date: 20210305
  Receipt Date: 20210514
  Transmission Date: 20210717
  Serious: Yes (Hospitalization, Other)
  Sender: FDA-Public Use
  Company Number: US-ASTELLAS-2021US007687

PATIENT
  Age: 69 Year
  Sex: Male

DRUGS (2)
  1. ENZALUTAMIDE [Suspect]
     Active Substance: ENZALUTAMIDE
     Indication: PROSTATE CANCER
     Route: 048
     Dates: start: 20180918
  2. ENZALUTAMIDE [Suspect]
     Active Substance: ENZALUTAMIDE
     Route: 048

REACTIONS (4)
  - Atrial fibrillation [Recovered/Resolved]
  - Chest discomfort [Recovered/Resolved]
  - Tinnitus [Not Recovered/Not Resolved]
  - Memory impairment [Unknown]

NARRATIVE: CASE EVENT DATE: 20210223
